FAERS Safety Report 9787475 (Version 3)
Quarter: 2015Q3

REPORT INFORMATION
  Report Type: Spontaneous
  Country: FR (occurrence: FR)
  Receive Date: 20131230
  Receipt Date: 20150715
  Transmission Date: 20151125
  Serious: Yes (Hospitalization)
  Sender: FDA-Public Use
  Company Number: FR-009507513-1312FRA008913

PATIENT
  Age: 61 Year
  Sex: Female

DRUGS (11)
  1. REFRESH CELLUVISC [Concomitant]
     Active Substance: CARBOXYMETHYLCELLULOSE SODIUM
     Dosage: 4 GTT, QD (1 DROP, 4 TIMES A DAY)
     Route: 031
     Dates: start: 20131113
  2. DIFFU-K [Suspect]
     Active Substance: POTASSIUM CHLORIDE
     Dosage: 2 DF, QD
     Route: 048
     Dates: start: 20131117, end: 20131122
  3. APROVEL [Concomitant]
     Active Substance: IRBESARTAN
     Dosage: 1 DF, QD
     Route: 048
  4. DIAMOX SEQUELS [Suspect]
     Active Substance: ACETAZOLAMIDE
     Dosage: 4 DF, QD (1, 4 PER DAY)
     Route: 042
     Dates: start: 20131117, end: 20131121
  5. TAVANIC [Suspect]
     Active Substance: LEVOFLOXACIN
     Dosage: 500 MG, BID
     Route: 042
     Dates: start: 20131117, end: 20131120
  6. IMIPENEM AND CILASTATIN [Suspect]
     Active Substance: CILASTATIN SODIUM\IMIPENEM
     Dosage: 4 DF, QD (1, 4 PER DAY)
     Route: 042
     Dates: start: 20131117, end: 20131120
  7. ATROPINE. [Suspect]
     Active Substance: ATROPINE
     Dosage: 1 DROP, QD
     Route: 047
     Dates: start: 20131113, end: 20131121
  8. STAGID [Concomitant]
     Active Substance: METFORMIN PAMOATE
     Dosage: 0.5 DF, TID
     Route: 048
  9. PERFALGAN [Suspect]
     Active Substance: ACETAMINOPHEN
     Dosage: 4 G, QD (1G, 4 PER DAY)
     Route: 042
     Dates: start: 20131117, end: 20131120
  10. CHIBRO-CADRON [Concomitant]
     Active Substance: DEXAMETHASONE\NEOMYCIN SULFATE
     Dosage: 4 GTT, QD (1 DROP, 4 TIMES A DAY)
     Route: 031
     Dates: start: 20131113
  11. OCUFEN [Concomitant]
     Active Substance: FLURBIPROFEN SODIUM
     Dosage: 4 GTT, QD (1 DROP , 4 TIMES A DAY)
     Route: 031
     Dates: start: 20131113

REACTIONS (1)
  - Acute generalised exanthematous pustulosis [Recovered/Resolved with Sequelae]

NARRATIVE: CASE EVENT DATE: 20131119
